FAERS Safety Report 19953443 (Version 2)
Quarter: 2024Q4

REPORT INFORMATION
  Report Type: Report from Study
  Country: BG (occurrence: BG)
  Receive Date: 20211014
  Receipt Date: 20241007
  Transmission Date: 20250114
  Serious: Yes (Other)
  Sender: MYLAN
  Company Number: BG-CELLTRION HEALTHCARE HUNGARY KFT-2021BG008593

PATIENT
  Age: 72 Year
  Sex: Female
  Weight: 76 kg

DRUGS (7)
  1. TRASTUZUMAB [Suspect]
     Active Substance: TRASTUZUMAB
     Indication: Breast cancer
     Dosage: 450 MG, DATE OF MOST RECENT DOSE: 27/NOV/2019, EVERY 3 WEEK
     Route: 042
     Dates: start: 20191031, end: 20191120
  2. ZOLEDRONIC ACID [Suspect]
     Active Substance: ZOLEDRONIC ACID
     Indication: Breast cancer
     Dosage: 4 MILLIGRAM, Q28D, EVERY 4 WEEKS
     Route: 042
     Dates: start: 20191114
  3. DOCETAXEL [Suspect]
     Active Substance: DOCETAXEL
     Indication: Breast cancer
     Dosage: 75 MILLIGRAM
     Route: 042
     Dates: start: 20191031
  4. ENALAPRIL [Concomitant]
     Active Substance: ENALAPRIL
     Dosage: UNK
     Route: 065
     Dates: start: 20091215
  5. Analgin [Concomitant]
     Dosage: UNK
     Route: 065
     Dates: start: 20191015
  6. VENOFER [Concomitant]
     Active Substance: IRON SUCROSE
     Dosage: UNK
     Route: 065
  7. TRAMADOL [Concomitant]
     Active Substance: TRAMADOL
     Dosage: ONGOING CHECKED
     Route: 065
     Dates: start: 20200824

REACTIONS (2)
  - Leukopenia [Recovered/Resolved]
  - Underdose [Unknown]

NARRATIVE: CASE EVENT DATE: 20191031
